FAERS Safety Report 9720583 (Version 3)
Quarter: 2014Q2

REPORT INFORMATION
  Report Type: Report from Study
  Country: US (occurrence: US)
  Receive Date: 20131129
  Receipt Date: 20140620
  Transmission Date: 20141212
  Serious: Yes (Hospitalization)
  Sender: FDA-Public Use
  Company Number: US-SA-2013SA122458

PATIENT
  Age: 86 Year
  Sex: Male
  Weight: 70.4 kg

DRUGS (34)
  1. SARGRAMOSTIM [Suspect]
     Indication: MALIGNANT MELANOMA
     Dosage: D1-14, Q21D
     Route: 058
     Dates: end: 20131101
  2. SARGRAMOSTIM [Suspect]
     Indication: MALIGNANT MELANOMA
     Dosage: D1-14, Q21D
     Route: 058
     Dates: start: 20130827
  3. IPILIMUMAB [Suspect]
     Indication: MALIGNANT MELANOMA
     Dosage: Q21 DAY
     Route: 042
     Dates: start: 20130827, end: 20130827
  4. IPILIMUMAB [Suspect]
     Indication: MALIGNANT MELANOMA
     Dosage: Q21 DAY
     Route: 042
     Dates: start: 20131030, end: 20131030
  5. VITAMIN D3 [Concomitant]
     Route: 048
  6. RIVAROXABAN [Concomitant]
  7. SILODOSIN [Concomitant]
     Route: 048
  8. ROPINIROLE [Concomitant]
     Indication: RESTLESS LEGS SYNDROME
     Dosage: FREQUENCY: Q6H; QD
     Route: 048
  9. METOPROLOL [Concomitant]
     Indication: ATRIAL FIBRILLATION
     Route: 048
  10. COLESTYRAMINE [Concomitant]
  11. COLESTYRAMINE [Concomitant]
     Route: 048
  12. HERBAL PREPARATION [Concomitant]
  13. MELATONIN [Concomitant]
     Dosage: 6 MG QHS
  14. KRILL OIL [Concomitant]
  15. FLAXSEED OIL [Concomitant]
     Route: 048
  16. FISH OIL [Concomitant]
  17. ASPIRIN [Concomitant]
     Route: 048
  18. HYDRALAZINE [Concomitant]
     Indication: HYPERTENSION
     Dosage: FREQUENCY: Q5H , PRN B/P GREATER THAN 160/90
     Route: 042
  19. PROTONIX [Concomitant]
     Route: 042
  20. ATIVAN [Concomitant]
     Indication: ANXIETY
     Route: 048
  21. TYLENOL [Concomitant]
     Indication: PAIN
     Route: 048
  22. FLAGYL [Concomitant]
     Dosage: DOSE:500 UNIT(S)
     Route: 042
  23. LEVAQUIN [Concomitant]
     Dosage: DOSE:500 UNIT(S)
     Route: 042
  24. VICODIN [Concomitant]
     Indication: PAIN
     Dosage: DOSE: 500/5
     Route: 048
  25. VYTORIN [Concomitant]
     Dosage: DOSE: 10/20 MG
     Route: 065
  26. VITAMIN B12 [Concomitant]
     Route: 065
  27. FAMOTIDINE [Concomitant]
     Route: 065
  28. MESALAMINE [Concomitant]
     Dosage: FORM: CAPLETS
     Route: 048
  29. OMEGA-3 POLYUNSATURATED FATTY ACID [Concomitant]
     Route: 048
  30. PHENYLEPHRINE [Concomitant]
     Route: 061
  31. COENZYME Q10 [Concomitant]
     Dosage: FORM: CAPLETS
     Route: 048
  32. MULTIVITAMINS [Concomitant]
     Route: 065
  33. SOLUTIONS FOR PARENTERAL NUTRITION [Concomitant]
     Route: 065
     Dates: start: 20131121, end: 20131125
  34. RED BLOOD CELLS [Concomitant]
     Dosage: DOSE:2 UNIT(S)
     Dates: start: 2013

REACTIONS (8)
  - Enterocolitis [Not Recovered/Not Resolved]
  - Large intestine perforation [Not Recovered/Not Resolved]
  - Peritonitis [Not Recovered/Not Resolved]
  - Sepsis [Unknown]
  - Abdominal abscess [Unknown]
  - Electrolyte imbalance [Unknown]
  - Malnutrition [Unknown]
  - Lower gastrointestinal haemorrhage [Recovered/Resolved]
